FAERS Safety Report 9617427 (Version 1)
Quarter: 2013Q4

REPORT INFORMATION
  Report Type: Report from Study
  Country: AR (occurrence: AR)
  Receive Date: 20131011
  Receipt Date: 20131011
  Transmission Date: 20140711
  Serious: Yes (Other)
  Sender: FDA-Public Use
  Company Number: PHHY2013AR114338

PATIENT
  Age: 83 Year
  Sex: Female

DRUGS (2)
  1. EXFORGE [Suspect]
     Indication: HYPERTENSION
     Dosage: 1 DF (160/10 MG), DAILY
     Route: 048
  2. ASPIRIN [Concomitant]

REACTIONS (3)
  - Fall [Recovered/Resolved]
  - Radius fracture [Recovering/Resolving]
  - Pain [Recovering/Resolving]
